FAERS Safety Report 5897508-9 (Version None)
Quarter: 2008Q3

REPORT INFORMATION
  Report Type: 
  Country: None (occurrence: None)
  Receive Date: 20080917
  Receipt Date: 20080717
  Transmission Date: 20090109
  Serious: Yes (Other)
  Sender: FDA-Public Use
  Company Number: PHEH2008US06021

PATIENT
  Age: 67 Year
  Sex: Female
  Weight: 59 kg

DRUGS (1)
  1. FEMARA [Suspect]
     Indication: BREAST CANCER STAGE IV
     Dosage: 25 MG DAILY
     Dates: start: 20040901, end: 20060801

REACTIONS (2)
  - DRUG INEFFECTIVE [None]
  - TUMOUR MARKER INCREASED [None]
